FAERS Safety Report 13036593 (Version 1)
Quarter: 2016Q4

REPORT INFORMATION
  Report Type: Report from Study
  Country: NL (occurrence: NL)
  Receive Date: 20161216
  Receipt Date: 20161216
  Transmission Date: 20170207
  Serious: Yes (Other)
  Sender: FDA-Public Use
  Company Number: PHHY2016NL172274

PATIENT
  Sex: Male

DRUGS (3)
  1. ZOMETA [Suspect]
     Active Substance: ZOLEDRONIC ACID
     Indication: CARCINOID TUMOUR
     Dosage: 4 MG/100 ML, EVERY 6 WEEKS
     Route: 042
     Dates: start: 20160818
  2. ZOMETA [Suspect]
     Active Substance: ZOLEDRONIC ACID
     Indication: METASTASES TO BONE
     Dosage: 4 MG/100 ML, EVERY 6 WEEKS
     Route: 042
  3. ZOMETA [Suspect]
     Active Substance: ZOLEDRONIC ACID
     Dosage: 4 MG/100 ML, EVERY 6 WEEKS
     Route: 042
     Dates: start: 20161110

REACTIONS (2)
  - Terminal state [Unknown]
  - Inappropriate schedule of drug administration [Unknown]
